FAERS Safety Report 18281464 (Version 1)
Quarter: 2020Q3

REPORT INFORMATION
  Report Type: Spontaneous
  Country: US (occurrence: US)
  Receive Date: 20200917
  Receipt Date: 20200917
  Transmission Date: 20201103
  Serious: Yes (Disabling)
  Sender: FDA-Public Use
  Company Number: None

PATIENT
  Age: 73 Year
  Sex: Female
  Weight: 112.5 kg

DRUGS (9)
  1. IRON [Concomitant]
     Active Substance: IRON
  2. METFORMIN [Concomitant]
     Active Substance: METFORMIN HYDROCHLORIDE
  3. HYDROCHLOROTHIAZIDE LOSARTAN [Concomitant]
     Active Substance: HYDROCHLOROTHIAZIDE\LOSARTAN
  4. VITAMIN C [Concomitant]
     Active Substance: ASCORBIC ACID
  5. METOPROLOL. [Concomitant]
     Active Substance: METOPROLOL
  6. TUMERIC [Concomitant]
     Active Substance: HERBALS\TURMERIC
  7. VITAMIN D3 [Concomitant]
     Active Substance: CHOLECALCIFEROL
  8. LANTUS [Concomitant]
     Active Substance: INSULIN GLARGINE
  9. LOSARTAN POTASSIUM 100MG [Suspect]
     Active Substance: LOSARTAN POTASSIUM
     Indication: HYPERTENSION
     Dosage: ?          QUANTITY:90 TABLET(S);?
     Route: 048

REACTIONS (8)
  - Arthralgia [None]
  - Splenomegaly [None]
  - Headache [None]
  - Hypertension [None]
  - Diarrhoea [None]
  - Illness [None]
  - Abdominal pain upper [None]
  - Hepatic cancer [None]

NARRATIVE: CASE EVENT DATE: 20200815
